FAERS Safety Report 10589282 (Version 2)
Quarter: 2014Q4

REPORT INFORMATION
  Report Type: Spontaneous
  Country: CA (occurrence: CA)
  Receive Date: 20141118
  Receipt Date: 20141118
  Transmission Date: 20150529
  Serious: Yes (Hospitalization)
  Sender: FDA-Public Use
  Company Number: CA-CIPLA LTD.-2014CA00409

PATIENT
  Age: 14 Month
  Sex: Male

DRUGS (1)
  1. DONEPEZIL [Suspect]
     Active Substance: DONEPEZIL
     Dosage: 10 MG

REACTIONS (8)
  - Drooling [Recovered/Resolved]
  - Rash erythematous [Recovered/Resolved]
  - Bradycardia [Recovered/Resolved]
  - Medication error [Recovered/Resolved]
  - Vomiting [Recovered/Resolved]
  - Mental status changes [Recovered/Resolved]
  - Somnolence [Recovered/Resolved]
  - Diarrhoea [Recovered/Resolved]
